FAERS Safety Report 7234787-X (Version None)
Quarter: 2011Q1

REPORT INFORMATION
  Report Type: 
  Country: None (occurrence: None)
  Receive Date: 20110114
  Receipt Date: 20110114
  Transmission Date: 20110831
  Serious: Yes (Hospitalization)
  Sender: FDA-Public Use
  Company Number: None

PATIENT
  Sex: Female
  Weight: 72.7 kg

DRUGS (1)
  1. PROLASTIN-C [Suspect]
     Indication: ALPHA-1 ANTI-TRYPSIN DEFICIENCY
     Dosage: 4360MG WEEKLY IV
     Route: 042
     Dates: start: 20000401

REACTIONS (4)
  - VISION BLURRED [None]
  - DYSPNOEA [None]
  - URTICARIA [None]
  - INFUSION RELATED REACTION [None]
